FAERS Safety Report 6465995-3 (Version None)
Quarter: 2009Q4

REPORT INFORMATION
  Report Type: 
  Country: None (occurrence: None)
  Receive Date: 20091201
  Receipt Date: 20091201
  Transmission Date: 20100525
  Serious: Yes (Other)
  Sender: FDA-Public Use
  Company Number: None

PATIENT
  Sex: Female
  Weight: 81.6475 kg

DRUGS (2)
  1. TRIAMCINOLONE [Suspect]
     Indication: FOOT FRACTURE
     Dosage: TWICE DAILY 2X'S
     Dates: start: 20091029, end: 20091102
  2. TRIAMCINOLONE [Suspect]
     Indication: SKIN DISCOLOURATION
     Dosage: TWICE DAILY 2X'S
     Dates: start: 20091029, end: 20091102

REACTIONS (4)
  - BURNING SENSATION [None]
  - ERYTHEMA [None]
  - PAIN IN EXTREMITY [None]
  - SKIN DISCOLOURATION [None]
